FAERS Safety Report 4334370-X (Version None)
Quarter: 2004Q1

REPORT INFORMATION
  Report Type: 
  Country: None (occurrence: None)
  Receive Date: 20040326
  Receipt Date: 20040213
  Transmission Date: 20041129
  Serious: Yes (Other)
  Sender: FDA-Public Use
  Company Number: US-JNJFOC-20031005071

PATIENT
  Age: 92 Year
  Sex: Female
  Weight: 59.4212 kg

DRUGS (2)
  1. REMINYL [Suspect]
     Indication: DRUG USE FOR UNKNOWN INDICATION
     Dosage: ORAL
     Route: 048
  2. SYNTHROID (TABLETS) LEVOTHYROXINE SODIUM [Concomitant]

REACTIONS (1)
  - HYPERTENSION [None]
